FAERS Safety Report 26085885 (Version 1)
Quarter: 2025Q4

REPORT INFORMATION
  Report Type: Spontaneous
  Country: US (occurrence: US)
  Receive Date: 20251125
  Receipt Date: 20251125
  Transmission Date: 20260118
  Serious: Yes (Death)
  Sender: KARYOPHARM THERAPEUTICS
  Company Number: US-KARYOPHARM-2025KPT100984

PATIENT

DRUGS (6)
  1. SELINEXOR [Suspect]
     Active Substance: SELINEXOR
     Indication: Central nervous system lesion
     Dosage: 100 MG WEEKLY
     Route: 048
     Dates: start: 20241107, end: 2025
  2. EMEND [Concomitant]
     Active Substance: APREPITANT
  3. CYPROHEPTADINE [Concomitant]
     Active Substance: CYPROHEPTADINE
  4. DRONABINOL [Concomitant]
     Active Substance: DRONABINOL
  5. PREDNISONE [Concomitant]
     Active Substance: PREDNISONE
  6. ALBUTEROL [Concomitant]
     Active Substance: ALBUTEROL

REACTIONS (1)
  - Death [Fatal]

NARRATIVE: CASE EVENT DATE: 20251120
